FAERS Safety Report 11298591 (Version 1)
Quarter: 2015Q3

REPORT INFORMATION
  Report Type: Spontaneous
  Country: US (occurrence: US)
  Receive Date: 20150722
  Receipt Date: 20150722
  Transmission Date: 20151125
  Serious: No
  Sender: FDA-Public Use
  Company Number: US-ELI_LILLY_AND_COMPANY-US201111004565

PATIENT
  Age: 51 Year
  Sex: Female

DRUGS (1)
  1. HUMATROPE [Suspect]
     Active Substance: SOMATROPIN
     Indication: HYPOPITUITARISM
     Dosage: UNK, UNKNOWN
     Dates: start: 201001, end: 20120108

REACTIONS (11)
  - Dry skin [Unknown]
  - Drug dose omission [Unknown]
  - Asthenia [Unknown]
  - Feeling abnormal [Unknown]
  - Pruritus [Unknown]
  - Skin disorder [Unknown]
  - Visual acuity reduced [Unknown]
  - Pharyngitis streptococcal [Unknown]
  - Somnolence [Unknown]
  - Incorrect dose administered [Unknown]
  - Arthralgia [Unknown]

NARRATIVE: CASE EVENT DATE: 20111111
